FAERS Safety Report 19463160 (Version 2)
Quarter: 2021Q3

REPORT INFORMATION
  Report Type: Report from Study
  Country: US (occurrence: US)
  Receive Date: 20210625
  Receipt Date: 20210709
  Transmission Date: 20211014
  Serious: Yes (Death, Hospitalization, Other)
  Sender: FDA-Public Use
  Company Number: US-GLAXOSMITHKLINE-US2021AMR073323

PATIENT
  Age: 51 Year
  Sex: Female

DRUGS (2)
  1. BELANTAMAB MAFODOTIN. [Suspect]
     Active Substance: BELANTAMAB MAFODOTIN
     Indication: PLASMA CELL MYELOMA
     Dosage: UNK
     Dates: start: 20210329
  2. LORAZEPAM. [Suspect]
     Active Substance: LORAZEPAM
     Indication: ANXIETY
     Dosage: 0.5 MG

REACTIONS (8)
  - Bone pain [Unknown]
  - Keratopathy [Recovering/Resolving]
  - Night blindness [Unknown]
  - Brain neoplasm [Unknown]
  - Plasma cell myeloma [Fatal]
  - Brain oedema [Unknown]
  - Visual acuity reduced [Unknown]
  - Vision blurred [Recovering/Resolving]

NARRATIVE: CASE EVENT DATE: 20210420
